FAERS Safety Report 10234801 (Version 1)
Quarter: 2014Q2

REPORT INFORMATION
  Report Type: Spontaneous
  Country: US (occurrence: None)
  Receive Date: 20140509
  Receipt Date: 20140509
  Transmission Date: 20141212
  Serious: Yes (Other)
  Sender: FDA-Public Use
  Company Number: VISP-PR-1402S-0072

PATIENT
  Age: 62 Year
  Sex: Female
  Weight: 86.64 kg

DRUGS (5)
  1. VISIPAQUE (IODIXANOL) [Suspect]
     Indication: CARCINOID TUMOUR
     Route: 042
     Dates: start: 20140113, end: 20140113
  2. VISIPAQUE (IODIXANOL) [Suspect]
     Indication: DIAGNOSTIC PROCEDURE
     Route: 042
     Dates: start: 20140113, end: 20140113
  3. INSULIN ASPART(INSULIN ASPART) [Concomitant]
  4. INSULIN GLARGINE (INSULIN GLARGINE) [Concomitant]
  5. OCTREOTIDE (OCTREOTIDE) [Concomitant]

REACTIONS (1)
  - Hypersensitivity [None]
